FAERS Safety Report 5969044-2 (Version None)
Quarter: 2008Q4

REPORT INFORMATION
  Report Type: 
  Country: None (occurrence: None)
  Receive Date: 20081126
  Receipt Date: 20081119
  Transmission Date: 20090506
  Serious: Yes (Hospitalization)
  Sender: FDA-Public Use
  Company Number: IT-WYE-H06000808

PATIENT
  Sex: Male

DRUGS (5)
  1. CORDARONE [Suspect]
     Indication: ARRHYTHMIA
     Route: 048
     Dates: start: 20050601, end: 20080810
  2. SINTROM [Concomitant]
     Indication: ANTICOAGULANT THERAPY
     Dosage: UNSPECIFIED
     Route: 048
  3. BISOPROLOL FUMARATE [Concomitant]
     Route: 048
  4. DICLOFENAC SODIUM [Suspect]
     Indication: OSTEOARTHRITIS
     Route: 048
     Dates: start: 20080724, end: 20080810
  5. ENAPREN [Concomitant]
     Route: 048
     Dates: start: 20060901

REACTIONS (3)
  - GASTRIC ULCER [None]
  - HAEMORRHAGIC ANAEMIA [None]
  - HYPERTHYROIDISM [None]
